FAERS Safety Report 10187408 (Version 1)
Quarter: 2014Q2

REPORT INFORMATION
  Report Type: Report from Study
  Country: US (occurrence: None)
  Receive Date: 20140520
  Receipt Date: 20140520
  Transmission Date: 20141212
  Serious: Yes (Hospitalization)
  Sender: FDA-Public Use
  Company Number: 2013SA116845

PATIENT
  Age: 55 Year
  Sex: Female

DRUGS (1)
  1. AUBAGIO [Suspect]
     Indication: MULTIPLE SCLEROSIS
     Route: 048
     Dates: start: 20131009, end: 20131201

REACTIONS (16)
  - Anger [None]
  - Chest pain [None]
  - Constipation [None]
  - Mood swings [None]
  - Condition aggravated [None]
  - Irritability [None]
  - Feeling abnormal [None]
  - Urinary incontinence [None]
  - Paraesthesia [None]
  - Pruritus [None]
  - Headache [None]
  - Dyspnoea [None]
  - Urinary tract infection [None]
  - Drug dose omission [None]
  - Mental disorder [None]
  - Agitation [None]
